FAERS Safety Report 5906745-6 (Version None)
Quarter: 2008Q3

REPORT INFORMATION
  Report Type: 
  Country: None (occurrence: None)
  Receive Date: 20080930
  Receipt Date: 20080925
  Transmission Date: 20090109
  Serious: Yes (Death)
  Sender: FDA-Public Use
  Company Number: 2008JP004561

PATIENT
  Age: 39 Year
  Sex: Male

DRUGS (4)
  1. PROGRAF [Suspect]
     Indication: BONE MARROW TRANSPLANT
  2. PREDNISOLONE [Concomitant]
  3. CYCLOSPORINE [Concomitant]
  4. STEROID FORMULATION UNKNOWN [Concomitant]

REACTIONS (4)
  - CHOLESTASIS [None]
  - INFECTION [None]
  - THROMBOTIC MICROANGIOPATHY [None]
  - VANISHING BILE DUCT SYNDROME [None]
